FAERS Safety Report 9835664 (Version 1)
Quarter: 2014Q1

REPORT INFORMATION
  Report Type: Spontaneous
  Country: US (occurrence: US)
  Receive Date: 20140122
  Receipt Date: 20140122
  Transmission Date: 20141002
  Serious: Yes (Other)
  Sender: FDA-Public Use
  Company Number: US-ACTAVIS-2014-00293

PATIENT
  Age: 18 Year
  Sex: 0

DRUGS (1)
  1. MINOCYCLINE HCL (WATSON LABORATORIES) [Suspect]
     Indication: PRODUCT USED FOR UNKNOWN INDICATION
     Dosage: UNK, UNKNOWN
     Dates: start: 20130825, end: 20131031

REACTIONS (7)
  - Benign intracranial hypertension [Unknown]
  - Dizziness [Unknown]
  - Abdominal pain upper [Unknown]
  - Stomatitis [Unknown]
  - Vertigo [Unknown]
  - Heart rate increased [Unknown]
  - Thyroid function test abnormal [Unknown]
